FAERS Safety Report 4988418-X (Version None)
Quarter: 2006Q2

REPORT INFORMATION
  Report Type: 
  Country: None (occurrence: None)
  Receive Date: 20060502
  Receipt Date: 20060425
  Transmission Date: 20061013
  Serious: Yes (Hospitalization)
  Sender: FDA-Public Use
  Company Number: US-BRISTOL-MYERS SQUIBB COMPANY-13356332

PATIENT
  Age: 67 Year
  Sex: Female

DRUGS (3)
  1. METFORMIN HYDROCHLORIDE [Suspect]
  2. DIABETA [Concomitant]
  3. PLAVIX [Concomitant]
     Dates: start: 20060418

REACTIONS (2)
  - CORONARY ARTERIAL STENT INSERTION [None]
  - HYPERGLYCAEMIA [None]
